FAERS Safety Report 24949954 (Version 1)
Quarter: 2025Q1

REPORT INFORMATION
  Report Type: Spontaneous
  Country: US (occurrence: None)
  Receive Date: 20250207
  Receipt Date: 20250207
  Transmission Date: 20250409
  Serious: Yes (Disabling)
  Sender: FDA-CTU
  Company Number: None

PATIENT
  Sex: Female

DRUGS (1)
  1. KISQALI [Suspect]
     Active Substance: RIBOCICLIB

REACTIONS (4)
  - Neuropathy peripheral [None]
  - Hypoaesthesia [None]
  - Mobility decreased [None]
  - Gait disturbance [None]
